FAERS Safety Report 25387745 (Version 1)
Quarter: 2025Q2

REPORT INFORMATION
  Report Type: Spontaneous
  Country: US (occurrence: US)
  Receive Date: 20250603
  Receipt Date: 20250603
  Transmission Date: 20250716
  Serious: Yes (Other)
  Sender: GLAXOSMITHKLINE
  Company Number: US-GSK-US2025068125

PATIENT
  Age: 34 Year
  Sex: Female

DRUGS (3)
  1. LAMICTAL [Suspect]
     Active Substance: LAMOTRIGINE
     Indication: Product used for unknown indication
     Dates: start: 20150530
  2. BANZEL [Suspect]
     Active Substance: RUFINAMIDE
     Indication: Seizure
  3. VIMPAT [Suspect]
     Active Substance: LACOSAMIDE
     Indication: Seizure

REACTIONS (1)
  - Aplasia pure red cell [Unknown]

NARRATIVE: CASE EVENT DATE: 20180530
